FAERS Safety Report 10015634 (Version 1)
Quarter: 2014Q1

REPORT INFORMATION
  Report Type: Spontaneous
  Country: US (occurrence: US)
  Receive Date: 20140317
  Receipt Date: 20140317
  Transmission Date: 20141002
  Serious: No
  Sender: FDA-Public Use
  Company Number: US-009507513-1403USA002578

PATIENT
  Sex: Male

DRUGS (1)
  1. COZAAR [Suspect]
     Dosage: 50 MG, UNK
     Route: 048
     Dates: start: 20140305

REACTIONS (2)
  - Accidental overdose [Unknown]
  - No adverse event [Unknown]
